FAERS Safety Report 20040671 (Version 1)
Quarter: 2021Q4

REPORT INFORMATION
  Report Type: Spontaneous
  Country: US (occurrence: None)
  Receive Date: 20211108
  Receipt Date: 20211108
  Transmission Date: 20220303
  Serious: Yes (Other)
  Sender: FDA-Public Use
  Company Number: None

PATIENT
  Age: 19 Year
  Sex: Male

DRUGS (1)
  1. TREMFYA [Suspect]
     Active Substance: GUSELKUMAB
     Indication: Psoriasis
     Dosage: OTHER FREQUENCY : WEEK 0,4 THEN Q8WK;?
     Route: 058
     Dates: start: 20211103

REACTIONS (4)
  - Loss of consciousness [None]
  - Hypoaesthesia [None]
  - Muscle spasms [None]
  - Muscle spasms [None]
